FAERS Safety Report 20021740 (Version 2)
Quarter: 2021Q4

REPORT INFORMATION
  Report Type: Report from Study
  Country: US (occurrence: US)
  Receive Date: 20211101
  Receipt Date: 20211125
  Transmission Date: 20220303
  Serious: Yes (Hospitalization)
  Sender: FDA-Public Use
  Company Number: US-SEATTLE GENETICS-2021SGN05495

PATIENT
  Age: 64 Year
  Sex: Female
  Weight: 111.2 kg

DRUGS (24)
  1. BRENTUXIMAB VEDOTIN [Suspect]
     Active Substance: BRENTUXIMAB VEDOTIN
     Indication: Angioimmunoblastic T-cell lymphoma
     Dosage: 1.8 MG/KG, DAYS 1 OF EVERY 21-DAY CYCLE
     Route: 042
     Dates: start: 20210630, end: 20211014
  2. CYCLOPHOSPHAMIDE [Suspect]
     Active Substance: CYCLOPHOSPHAMIDE
     Indication: Angioimmunoblastic T-cell lymphoma
     Dosage: 750 MG/M2, DAY 1 OF EACH CYCLE
     Route: 042
     Dates: start: 20210630, end: 20211014
  3. DOXORUBICIN [Suspect]
     Active Substance: DOXORUBICIN
     Indication: Angioimmunoblastic T-cell lymphoma
     Dosage: 50 MG/M2, DAY 1 OF EACH CYCLE
     Route: 042
     Dates: start: 20210630, end: 20211014
  4. PREDNISONE [Suspect]
     Active Substance: PREDNISONE
     Indication: Angioimmunoblastic T-cell lymphoma
     Dosage: 100 MG, QD, DAYS 1-5 OF EACH CYCLE
     Route: 048
     Dates: start: 20210630, end: 20211014
  5. APREPITANT [Concomitant]
     Active Substance: APREPITANT
     Indication: Prophylaxis
     Dosage: UNK
     Route: 042
     Dates: start: 20210630
  6. APREPITANT [Concomitant]
     Active Substance: APREPITANT
     Indication: Nausea
     Dosage: UNK
     Route: 048
     Dates: start: 20210722
  7. DEXAMETHASONE [Concomitant]
     Active Substance: DEXAMETHASONE
     Indication: Prophylaxis
     Dosage: UNK
     Route: 042
     Dates: start: 20210630
  8. PALONOSETRON [Concomitant]
     Active Substance: PALONOSETRON
     Indication: Prophylaxis
     Dosage: UNK
     Route: 042
     Dates: start: 20210630
  9. PEGFILGRASTIM [Concomitant]
     Active Substance: PEGFILGRASTIM
     Indication: Prophylaxis
     Dosage: UNK
     Route: 058
     Dates: start: 20210630
  10. CELECOXIB [Concomitant]
     Active Substance: CELECOXIB
     Indication: Arthritis
     Dosage: UNK
     Route: 048
     Dates: start: 20210304
  11. ASPIRIN [Concomitant]
     Active Substance: ASPIRIN
     Indication: Cardiac disorder
     Dosage: UNK
     Route: 048
     Dates: start: 20210304
  12. ATORVASTATIN [Concomitant]
     Active Substance: ATORVASTATIN
     Indication: Cardiac disorder
     Dosage: UNK
     Route: 048
     Dates: start: 20210304
  13. METFORMIN [Concomitant]
     Active Substance: METFORMIN HYDROCHLORIDE
     Indication: Hyperglycaemia
     Dosage: UNK
     Route: 048
     Dates: start: 20210304
  14. ALBUTEROL SULFATE [Concomitant]
     Active Substance: ALBUTEROL SULFATE
     Indication: Asthma
     Dosage: UNK
     Dates: start: 20210304
  15. CARVEDILOL [Concomitant]
     Active Substance: CARVEDILOL
     Indication: Hypertension
     Dosage: UNK
     Route: 048
     Dates: start: 20210304
  16. FEXOFENADINE [Concomitant]
     Active Substance: FEXOFENADINE HYDROCHLORIDE
     Indication: Hypersensitivity
     Dosage: UNK
     Route: 048
     Dates: start: 20210304
  17. ESOMEPRAZOLE [Concomitant]
     Active Substance: ESOMEPRAZOLE
     Indication: Gastrooesophageal reflux disease
     Dosage: UNK
     Route: 048
     Dates: start: 20210304
  18. CALCIUM CARBONATE [Concomitant]
     Active Substance: CALCIUM CARBONATE
     Indication: Mineral supplementation
     Dosage: UNK
     Route: 048
     Dates: start: 20210622
  19. ACYCLOVIR [Concomitant]
     Active Substance: ACYCLOVIR
     Indication: Viral infection
     Dosage: UNK
     Route: 048
     Dates: start: 20210630
  20. ONDANSETRON [Concomitant]
     Active Substance: ONDANSETRON
     Indication: Nausea
     Dosage: UNK
     Route: 048
     Dates: start: 20210630
  21. PROCHLORPERAZINE [Concomitant]
     Active Substance: PROCHLORPERAZINE
     Indication: Nausea
     Dosage: UNK
     Route: 048
     Dates: start: 20210706
  22. OXYCODONE [Concomitant]
     Active Substance: OXYCODONE
     Indication: Pain
     Dosage: UNK
     Route: 048
     Dates: start: 20210706
  23. NYSTATIN [Concomitant]
     Active Substance: NYSTATIN
     Indication: Mucosal inflammation
     Dosage: UNK
     Route: 048
     Dates: start: 20210722
  24. DIMETHICONE\LOPERAMIDE HYDROCHLORIDE [Concomitant]
     Active Substance: DIMETHICONE\LOPERAMIDE HYDROCHLORIDE
     Indication: Diarrhoea
     Dosage: UNK
     Route: 048
     Dates: start: 20210930

REACTIONS (1)
  - Clostridium difficile colitis [Recovered/Resolved]

NARRATIVE: CASE EVENT DATE: 20211023
